FAERS Safety Report 5108603-6 (Version None)
Quarter: 2006Q3

REPORT INFORMATION
  Report Type: 
  Country: None (occurrence: None)
  Receive Date: 20060915
  Receipt Date: 20060908
  Transmission Date: 20061208
  Serious: Yes (Hospitalization)
  Sender: FDA-Public Use
  Company Number: GXKR2006GB05569

PATIENT
  Age: 29 Year
  Sex: Female

DRUGS (2)
  1. FLUOXETINE [Suspect]
     Indication: POSTPARTUM DEPRESSION
     Dosage: 40 MG, QD, ORAL
     Route: 048
     Dates: start: 20030701
  2. FOLIC ACID [Concomitant]

REACTIONS (4)
  - ABORTION SPONTANEOUS [None]
  - DRUG EXPOSURE DURING PREGNANCY [None]
  - FOETAL GROWTH RETARDATION [None]
  - PREGNANCY [None]
